FAERS Safety Report 8492583-X (Version None)
Quarter: 2012Q2

REPORT INFORMATION
  Report Type: 
  Country: None (occurrence: None)
  Receive Date: 20120629
  Receipt Date: 20120629
  Transmission Date: 20120825
  Serious: Yes (Hospitalization)
  Sender: FDA-Public Use
  Company Number: None

PATIENT
  Age: 65 Year
  Sex: Male
  Weight: 83.8 kg

DRUGS (3)
  1. RIDAFOROLIMUS [Suspect]
     Indication: OVARIAN CANCER
     Dosage: 10 MG PO DAYS 1-5
     Route: 048
     Dates: start: 20120618, end: 20120622
  2. PACLITAXEL [Suspect]
     Indication: OVARIAN CANCER
     Dosage: TAXOL 175MG/M2
     Dates: start: 20120618, end: 20120618
  3. CARBOPLATIN [Suspect]
     Indication: OVARIAN CANCER
     Dosage: CARBOAUC5
     Dates: start: 20120618, end: 20120618

REACTIONS (3)
  - HAEMOGLOBIN DECREASED [None]
  - WHITE BLOOD CELL COUNT DECREASED [None]
  - PLATELET COUNT DECREASED [None]
